FAERS Safety Report 24180658 (Version 1)
Quarter: 2024Q3

REPORT INFORMATION
  Report Type: Spontaneous
  Country: ZA (occurrence: ZA)
  Receive Date: 20240806
  Receipt Date: 20240806
  Transmission Date: 20241017
  Serious: Yes (Hospitalization)
  Sender: AMERICAN REGENT
  Company Number: ZA-AMERICAN REGENT INC-2024002974

PATIENT
  Age: 30 Year
  Sex: Female

DRUGS (1)
  1. FERINJECT [Suspect]
     Active Substance: FERRIC CARBOXYMALTOSE
     Indication: Iron deficiency anaemia
     Dosage: 1000 MILLIGRAM
     Dates: start: 20240620, end: 20240620

REACTIONS (2)
  - Maternal exposure during pregnancy [Unknown]
  - Hypertension [Unknown]

NARRATIVE: CASE EVENT DATE: 20240620
